FAERS Safety Report 5810541-8 (Version None)
Quarter: 2008Q3

REPORT INFORMATION
  Report Type: 
  Country: None (occurrence: None)
  Receive Date: 20080715
  Receipt Date: 20080703
  Transmission Date: 20090109
  Serious: Yes (Hospitalization, Other)
  Sender: FDA-Public Use
  Company Number: US-PFIZER INC-2008056460

PATIENT
  Sex: Female
  Weight: 54.5 kg

DRUGS (5)
  1. CHANTIX [Suspect]
     Indication: SMOKING CESSATION THERAPY
     Route: 048
     Dates: start: 20080601, end: 20080630
  2. PROZAC [Concomitant]
     Indication: DEPRESSION
  3. XANAX [Concomitant]
     Indication: ANXIETY
  4. CHONDROITIN/GLUCOSAMINE [Concomitant]
  5. MULTI-VITAMINS [Concomitant]

REACTIONS (5)
  - HEADACHE [None]
  - HEMIPLEGIA [None]
  - INCONTINENCE [None]
  - NAUSEA [None]
  - PAIN [None]
